FAERS Safety Report 20495591 (Version 2)
Quarter: 2022Q1

REPORT INFORMATION
  Report Type: Spontaneous
  Country: IN (occurrence: IN)
  Receive Date: 20220221
  Receipt Date: 20220301
  Transmission Date: 20220424
  Serious: Yes (Hospitalization, Other)
  Sender: FDA-Public Use
  Company Number: IN-LUPIN PHARMACEUTICALS INC.-2022-02186

PATIENT
  Age: 12 Year
  Sex: Male

DRUGS (3)
  1. IMATINIB MESYLATE [Suspect]
     Active Substance: IMATINIB MESYLATE
     Indication: Chronic myeloid leukaemia
     Dosage: 400 MILLIGRAM, QD (340 MG/M^2 ONCE A DAY)
     Route: 065
  2. IMATINIB MESYLATE [Suspect]
     Active Substance: IMATINIB MESYLATE
     Dosage: UNK-AFTER 11 WEEKS RESTARTED
     Route: 065
  3. HYDROXYUREA [Concomitant]
     Active Substance: HYDROXYUREA
     Indication: Chronic myeloid leukaemia
     Dosage: 50 MILLIGRAM/KILOGRAM, QD
     Route: 065

REACTIONS (6)
  - Retroperitoneal fibrosis [Recovered/Resolved]
  - Hydronephrosis [Recovered/Resolved]
  - Toxicity to various agents [Unknown]
  - Skin hypopigmentation [Recovered/Resolved]
  - Hypovitaminosis [Unknown]
  - Myalgia [Recovered/Resolved]
